FAERS Safety Report 13942017 (Version 1)
Quarter: 2017Q3

REPORT INFORMATION
  Report Type: Spontaneous
  Country: US (occurrence: US)
  Receive Date: 20170906
  Receipt Date: 20170906
  Transmission Date: 20171127
  Serious: No
  Sender: FDA-Public Use
  Company Number: US-BAYER-2017-159406

PATIENT

DRUGS (1)
  1. BETASERON [Suspect]
     Active Substance: INTERFERON BETA-1B

REACTIONS (2)
  - Injection site inflammation [None]
  - Injection site pain [None]
